FAERS Safety Report 16551339 (Version 1)
Quarter: 2019Q3

REPORT INFORMATION
  Report Type: Spontaneous
  Country: AT (occurrence: AT)
  Receive Date: 20190710
  Receipt Date: 20190710
  Transmission Date: 20191004
  Serious: Yes (Life-Threatening, Other)
  Sender: FDA-Public Use
  Company Number: AT-BRISTOL-MYERS SQUIBB COMPANY-BMS-2019-066821

PATIENT
  Sex: Male

DRUGS (1)
  1. OPDIVO [Suspect]
     Active Substance: NIVOLUMAB
     Indication: OROPHARYNGEAL CANCER RECURRENT
     Dosage: 3 MILLIGRAM/KILOGRAM
     Route: 065
     Dates: start: 20190520

REACTIONS (4)
  - Liver function test increased [Unknown]
  - Hepatitis [Unknown]
  - Drug ineffective [Unknown]
  - Malignant neoplasm progression [Unknown]
